FAERS Safety Report 20218723 (Version 1)
Quarter: 2021Q4

REPORT INFORMATION
  Report Type: Spontaneous
  Country: US (occurrence: US)
  Receive Date: 20211222
  Receipt Date: 20211222
  Transmission Date: 20220303
  Serious: No
  Sender: FDA-Public Use
  Company Number: US-TAKEDA-2021TUS080116

PATIENT
  Age: 82 Year
  Sex: Male
  Weight: 107 kg

DRUGS (1)
  1. VELCADE [Suspect]
     Active Substance: BORTEZOMIB
     Indication: Plasma cell myeloma
     Dosage: 1 MILLIGRAM/SQ. METER, 1/WEEK
     Route: 065
     Dates: start: 201807

REACTIONS (2)
  - Confusional state [Unknown]
  - Product dose omission issue [Unknown]
